FAERS Safety Report 11451527 (Version 3)
Quarter: 2017Q3

REPORT INFORMATION
  Report Type: Report from Study
  Country: US (occurrence: US)
  Receive Date: 20150903
  Receipt Date: 20170829
  Transmission Date: 20171127
  Serious: Yes (Other)
  Sender: FDA-Public Use
  Company Number: US-AMGEN-USASL2015089315

PATIENT
  Age: 49 Year
  Sex: Female

DRUGS (4)
  1. ENBREL [Suspect]
     Active Substance: ETANERCEPT
     Indication: PSORIATIC ARTHROPATHY
     Dosage: 50 MG, 2 TIMES/WK
     Route: 065
     Dates: start: 201406
  2. ENBREL [Suspect]
     Active Substance: ETANERCEPT
     Indication: PSORIASIS
     Dosage: 50 MG, QWK
     Route: 065
  3. ENBREL [Suspect]
     Active Substance: ETANERCEPT
     Indication: RHEUMATOID ARTHRITIS
  4. ENBREL [Suspect]
     Active Substance: ETANERCEPT
     Indication: PUSTULAR PSORIASIS

REACTIONS (7)
  - Psoriasis [Unknown]
  - Intentional product misuse [Unknown]
  - Systemic lupus erythematosus [Not Recovered/Not Resolved]
  - Drug dose omission [Unknown]
  - Pustular psoriasis [Unknown]
  - Gait disturbance [Unknown]
  - Memory impairment [Not Recovered/Not Resolved]
